FAERS Safety Report 10723004 (Version 4)
Quarter: 2015Q2

REPORT INFORMATION
  Report Type: Spontaneous
  Country: JP (occurrence: JP)
  Receive Date: 20150120
  Receipt Date: 20150401
  Transmission Date: 20150821
  Serious: Yes (Life-Threatening, Hospitalization)
  Sender: FDA-Public Use
  Company Number: JP-ROCHE-1522338

PATIENT
  Age: 56 Year
  Sex: Male
  Weight: 73 kg

DRUGS (13)
  1. PEGASYS [Suspect]
     Active Substance: PEGINTERFERON ALFA-2A
     Indication: CHRONIC HEPATITIS C
     Route: 058
     Dates: start: 20140910
  2. PEGASYS [Suspect]
     Active Substance: PEGINTERFERON ALFA-2A
     Route: 058
     Dates: start: 20140926, end: 20140926
  3. MUCOSTA [Concomitant]
     Active Substance: REBAMIPIDE
     Route: 048
     Dates: start: 20141010, end: 20141012
  4. PEGASYS [Suspect]
     Active Substance: PEGINTERFERON ALFA-2A
     Route: 058
     Dates: start: 20140919, end: 20140919
  5. COPEGUS [Suspect]
     Active Substance: RIBAVIRIN
     Route: 048
     Dates: start: 20140910, end: 20140913
  6. AMLODIN [Concomitant]
     Active Substance: AMLODIPINE BESYLATE
     Dosage: LAST PRESCRIBED ON 23/JUL/2014
     Route: 048
  7. OLMETEC [Concomitant]
     Active Substance: OLMESARTAN MEDOXOMIL
     Dosage: LAST PRESCRIBED ON 23/JUL/2014
     Route: 065
  8. SOVRIAD [Suspect]
     Active Substance: SIMEPREVIR
     Indication: CHRONIC HEPATITIS C
     Route: 048
     Dates: start: 20140910, end: 20141009
  9. DICLOFENAC SODIUM. [Concomitant]
     Active Substance: DICLOFENAC SODIUM
     Indication: MALAISE
     Route: 048
  10. CIALIS [Concomitant]
     Active Substance: TADALAFIL
     Route: 048
     Dates: start: 20141004, end: 20141004
  11. TAKEPRON [Concomitant]
     Active Substance: LANSOPRAZOLE
  12. COPEGUS [Suspect]
     Active Substance: RIBAVIRIN
     Indication: CHRONIC HEPATITIS C
     Route: 048
     Dates: start: 20140910
  13. COPEGUS [Suspect]
     Active Substance: RIBAVIRIN
     Route: 048
     Dates: start: 20140914

REACTIONS (11)
  - Blood bilirubin increased [Recovered/Resolved with Sequelae]
  - Renal failure [Unknown]
  - Hepatitis acute [Unknown]
  - Hepatic encephalopathy [Recovered/Resolved with Sequelae]
  - Faeces discoloured [Not Recovered/Not Resolved]
  - Hepatic failure [Recovered/Resolved with Sequelae]
  - Oropharyngeal pain [Unknown]
  - Pyrexia [Unknown]
  - Faeces soft [Unknown]
  - Accidental overdose [Unknown]
  - Abdominal pain upper [Unknown]

NARRATIVE: CASE EVENT DATE: 20141005
